FAERS Safety Report 7250677-0 (Version None)
Quarter: 2011Q1

REPORT INFORMATION
  Report Type: 
  Country: None (occurrence: None)
  Receive Date: 20110128
  Receipt Date: 20110125
  Transmission Date: 20110831
  Serious: Yes (Death)
  Sender: FDA-Public Use
  Company Number: PHHY2010US05934

PATIENT
  Sex: Male
  Weight: 103.87 kg

DRUGS (2)
  1. EXJADE [Suspect]
     Indication: IRON OVERLOAD
  2. EXJADE [Suspect]
     Indication: POLYCYTHAEMIA VERA
     Dosage: 1500 MG, QD
     Route: 048
     Dates: start: 20090717

REACTIONS (2)
  - DEATH [None]
  - STAPHYLOCOCCAL INFECTION [None]
